FAERS Safety Report 7067736-8 (Version None)
Quarter: 2010Q4

REPORT INFORMATION
  Report Type: 
  Country: None (occurrence: None)
  Receive Date: 20101020
  Receipt Date: 20101011
  Transmission Date: 20110411
  Serious: Yes (Other)
  Sender: FDA-Public Use
  Company Number: JPI-P-012502

PATIENT
  Age: 42 Year
  Sex: Female

DRUGS (4)
  1. XYREM [Suspect]
     Indication: INSOMNIA
     Dosage: 4.5 GM (2.25 GM, 2 IN 1 D), ORAL; 5 GM (2.5 GM, 2 IN 1 D), ORAL
     Route: 048
     Dates: start: 20080411
  2. XYREM [Suspect]
     Indication: SLEEP DISORDER
     Dosage: 4.5 GM (2.25 GM, 2 IN 1 D), ORAL; 5 GM (2.5 GM, 2 IN 1 D), ORAL
     Route: 048
     Dates: start: 20080411
  3. XYREM [Suspect]
     Indication: INSOMNIA
     Dosage: 4.5 GM (2.25 GM, 2 IN 1 D), ORAL; 5 GM (2.5 GM, 2 IN 1 D), ORAL
     Route: 048
     Dates: start: 20100607
  4. XYREM [Suspect]
     Indication: SLEEP DISORDER
     Dosage: 4.5 GM (2.25 GM, 2 IN 1 D), ORAL; 5 GM (2.5 GM, 2 IN 1 D), ORAL
     Route: 048
     Dates: start: 20100607

REACTIONS (7)
  - CRUSH INJURY [None]
  - DIZZINESS [None]
  - HEADACHE [None]
  - JOINT DISLOCATION [None]
  - ROAD TRAFFIC ACCIDENT [None]
  - SOMNAMBULISM [None]
  - TRAUMATIC FRACTURE [None]
